FAERS Safety Report 21927627 (Version 1)
Quarter: 2023Q1

REPORT INFORMATION
  Report Type: Spontaneous
  Country: FR (occurrence: FR)
  Receive Date: 20230130
  Receipt Date: 20230130
  Transmission Date: 20230418
  Serious: Yes (Life-Threatening)
  Sender: FDA-Public Use
  Company Number: None

PATIENT
  Age: 71 Year
  Sex: Female
  Weight: 91 kg

DRUGS (4)
  1. EPIRUBICIN [Suspect]
     Active Substance: EPIRUBICIN
     Indication: Breast cancer
     Dosage: UNK, 4 CYCLES
     Route: 042
     Dates: start: 201705, end: 201709
  2. BENFLUOREX [Suspect]
     Active Substance: BENFLUOREX
     Indication: Product used for unknown indication
     Dosage: UNK
     Route: 048
     Dates: start: 1975, end: 1980
  3. CYCLOPHOSPHAMIDE [Suspect]
     Active Substance: CYCLOPHOSPHAMIDE
     Indication: Breast cancer
     Dosage: UNK, 4 CYCLES
     Route: 042
     Dates: start: 201705, end: 201709
  4. TAXOTERE [Suspect]
     Active Substance: DOCETAXEL
     Indication: Breast cancer
     Dosage: UNK, 4 CYCLES
     Route: 042
     Dates: start: 201705, end: 201709

REACTIONS (2)
  - Pulmonary hypertension [Not Recovered/Not Resolved]
  - Cardiac failure [Not Recovered/Not Resolved]

NARRATIVE: CASE EVENT DATE: 20210801
